FAERS Safety Report 24080984 (Version 1)
Quarter: 2024Q3

REPORT INFORMATION
  Report Type: Spontaneous
  Country: US (occurrence: US)
  Receive Date: 20240711
  Receipt Date: 20240711
  Transmission Date: 20241016
  Serious: No
  Sender: MYLAN
  Company Number: US-MYLANLABS-2024M1061700

PATIENT
  Sex: Female
  Weight: 92.99 kg

DRUGS (1)
  1. BUPRENORPHINE AND NALOXONE SUBLINGUAL FILM [Suspect]
     Active Substance: BUPRENORPHINE HYDROCHLORIDE\NALOXONE HYDROCHLORIDE
     Indication: Pain
     Dosage: 5 MILLIGRAM (HALF IN THE MORNING AND HALF IN THE EVENING)
     Route: 060

REACTIONS (9)
  - Sneezing [Unknown]
  - Hypoaesthesia oral [Unknown]
  - Back pain [Unknown]
  - Withdrawal syndrome [Unknown]
  - Paraesthesia oral [Unknown]
  - Off label use [Unknown]
  - Wrong technique in product usage process [Unknown]
  - Product label issue [Unknown]
  - Product quality issue [Unknown]

NARRATIVE: CASE EVENT DATE: 20240101
